FAERS Safety Report 13662634 (Version 1)
Quarter: 2017Q2

REPORT INFORMATION
  Report Type: Spontaneous
  Country: US (occurrence: US)
  Receive Date: 20170616
  Receipt Date: 20170616
  Transmission Date: 20170830
  Serious: Yes (Hospitalization)
  Sender: FDA-Public Use
  Company Number: None

PATIENT
  Age: 69 Year
  Sex: Male
  Weight: 64.2 kg

DRUGS (1)
  1. METFORMIN [Suspect]
     Active Substance: METFORMIN HYDROCHLORIDE
     Indication: DIABETES MELLITUS
     Route: 048
     Dates: start: 20160720, end: 20160812

REACTIONS (5)
  - Diarrhoea [None]
  - Acute kidney injury [None]
  - Hypotension [None]
  - Hypovolaemia [None]
  - Presyncope [None]

NARRATIVE: CASE EVENT DATE: 20160812
